FAERS Safety Report 13093636 (Version 1)
Quarter: 2017Q1

REPORT INFORMATION
  Report Type: Spontaneous
  Country: US (occurrence: US)
  Receive Date: 20170106
  Receipt Date: 20170106
  Transmission Date: 20170428
  Serious: No
  Sender: FDA-Public Use
  Company Number: US-TARO-2016TAR00684

PATIENT
  Age: 85 Year
  Sex: Female
  Weight: 39.46 kg

DRUGS (5)
  1. TRIAMCINOLONE ACETONIDE CREAM USP 0.1% [Suspect]
     Active Substance: TRIAMCINOLONE ACETONIDE
     Indication: PURPURA
     Dosage: UNK, 2X/DAY
     Route: 061
     Dates: start: 20160516
  2. ERYTHROMYCIN OPHTHALMIC OINTMENT (BAUSCH + LOMB) [Suspect]
     Active Substance: ERYTHROMYCIN
     Dosage: UNK
     Dates: start: 20160323
  3. RESTASIS [Concomitant]
     Active Substance: CYCLOSPORINE
  4. REFRESH ADVANCED EYE [Concomitant]
  5. SIMVASTATIN. [Concomitant]
     Active Substance: SIMVASTATIN

REACTIONS (10)
  - Heart rate irregular [Not Recovered/Not Resolved]
  - Weight decreased [Not Recovered/Not Resolved]
  - Fall [Recovered/Resolved]
  - Eye colour change [Not Recovered/Not Resolved]
  - Abdominal pain upper [Recovered/Resolved]
  - Muscular weakness [Recovered/Resolved]
  - Sensory disturbance [Unknown]
  - Haemorrhage [Recovered/Resolved]
  - Hypotension [Unknown]
  - Laceration [Recovering/Resolving]

NARRATIVE: CASE EVENT DATE: 201608
